FAERS Safety Report 19094573 (Version 1)
Quarter: 2021Q2

REPORT INFORMATION
  Report Type: Spontaneous
  Country: US (occurrence: US)
  Receive Date: 20210405
  Receipt Date: 20210405
  Transmission Date: 20210717
  Serious: No
  Sender: FDA-Public Use
  Company Number: US-JAZZ-2021-US-000194

PATIENT
  Sex: Male
  Weight: 94.79 kg

DRUGS (1)
  1. SUNOSI [Suspect]
     Active Substance: SOLRIAMFETOL
     Indication: SLEEP APNOEA SYNDROME
     Dosage: 150 MILLIGRAM, QD
     Route: 048
     Dates: start: 20200818

REACTIONS (1)
  - Headache [Recovering/Resolving]
